FAERS Safety Report 19104529 (Version 2)
Quarter: 2021Q2

REPORT INFORMATION
  Report Type: Spontaneous
  Country: AT (occurrence: AT)
  Receive Date: 20210407
  Receipt Date: 20210507
  Transmission Date: 20210717
  Serious: Yes (Hospitalization, Other)
  Sender: FDA-Public Use
  Company Number: AT-TEVA-2021-AT-1896426

PATIENT
  Age: 64 Year
  Sex: Female

DRUGS (3)
  1. NAPROBENE 500 MG FILMTABLETTEN [Suspect]
     Active Substance: NAPROXEN
     Dosage: PAIN REOCCURRED AND SO SHE TOOK AGAIN 1 TABLET.
     Dates: start: 20210302
  2. NAPROBENE 500 MG FILMTABLETTEN [Suspect]
     Active Substance: NAPROXEN
     Indication: PAIN
     Dates: start: 2021, end: 2021
  3. EUTHYROX [Concomitant]
     Active Substance: LEVOTHYROXINE SODIUM
     Dosage: 50 MICROGRAM DAILY;

REACTIONS (5)
  - Loss of consciousness [Recovered/Resolved]
  - Feeling hot [Recovered/Resolved]
  - Blood pressure increased [Recovered/Resolved]
  - Erythema [Recovered/Resolved]
  - Anaphylactic shock [Recovered/Resolved]

NARRATIVE: CASE EVENT DATE: 202103
